FAERS Safety Report 22333320 (Version 1)
Quarter: 2023Q2

REPORT INFORMATION
  Report Type: Spontaneous
  Country: US (occurrence: None)
  Receive Date: 20230516
  Receipt Date: 20230516
  Transmission Date: 20230721
  Serious: No
  Sender: FDA-Public Use
  Company Number: None

PATIENT
  Age: 73 Year
  Sex: Female
  Weight: 47.17 kg

DRUGS (12)
  1. IMATINIB [Suspect]
     Active Substance: IMATINIB
     Indication: Gastrointestinal stromal tumour
     Dosage: FREQUENCY : DAILY;?
     Route: 048
  2. ACETAMINOPHEN [Concomitant]
  3. ADVAIR DISKUS [Concomitant]
  4. ALBUTEROL [Concomitant]
  5. CALTRATE 600 + D PLUS MINERALS [Concomitant]
  6. FLUTICASONE [Concomitant]
  7. IMATINIB [Concomitant]
  8. IPRATROPIUM-ALBUTEROL [Concomitant]
  9. LOPERAMIDE [Concomitant]
  10. PREDNISONE [Concomitant]
  11. SPIRIVA [Concomitant]
  12. VIT D [Concomitant]

REACTIONS (1)
  - Drug resistance [None]
